FAERS Safety Report 18180572 (Version 11)
Quarter: 2022Q1

REPORT INFORMATION
  Report Type: Report from Study
  Country: RU (occurrence: RU)
  Receive Date: 20200821
  Receipt Date: 20220224
  Transmission Date: 20220423
  Serious: Yes (Death, Life-Threatening, Hospitalization)
  Sender: FDA-Public Use
  Company Number: NVSC2019RU049882

PATIENT
  Age: 64 Year
  Sex: Male
  Weight: 84.2 kg

DRUGS (4)
  1. NILOTINIB [Suspect]
     Active Substance: NILOTINIB
     Indication: Chronic myeloid leukaemia
     Dosage: 400 MG, BID
     Route: 048
     Dates: start: 20130415, end: 20200625
  2. LOSARTAN POTASSIUM [Concomitant]
     Active Substance: LOSARTAN POTASSIUM
     Indication: Hypertension
     Dosage: 300 MG, QD
     Route: 048
     Dates: start: 2011, end: 20200625
  3. ASPIRIN [Concomitant]
     Active Substance: ASPIRIN
     Indication: Hypertension
     Dosage: 100 MG, QD
     Route: 048
     Dates: start: 2011, end: 20200625
  4. VINPOCETINE [Concomitant]
     Active Substance: VINPOCETINE
     Indication: Osteochondrosis
     Dosage: 10 MG, BID
     Route: 048
     Dates: start: 2000, end: 20200625

REACTIONS (4)
  - Prostate cancer [Fatal]
  - Myocardial infarction [Recovered/Resolved]
  - Anaemia [Recovered/Resolved]
  - Mallory-Weiss syndrome [Recovered/Resolved]

NARRATIVE: CASE EVENT DATE: 20191115
